FAERS Safety Report 9840635 (Version 1)
Quarter: 2014Q1

REPORT INFORMATION
  Report Type: Spontaneous
  Country: CA (occurrence: None)
  Receive Date: 20140121
  Receipt Date: 20140121
  Transmission Date: 20141002
  Serious: Yes (Hospitalization)
  Sender: FDA-Public Use
  Company Number: None

PATIENT
  Age: 3 Year
  Sex: Female
  Weight: 13.2 kg

DRUGS (2)
  1. CISPLATIN [Suspect]
  2. VINCRISTINE SULFATE [Suspect]

REACTIONS (5)
  - Pyrexia [None]
  - Diarrhoea [None]
  - Dehydration [None]
  - Hypernatraemia [None]
  - Dehydration [None]
